FAERS Safety Report 16371464 (Version 2)
Quarter: 2019Q2

REPORT INFORMATION
  Report Type: Report from Study
  Country: FR (occurrence: FR)
  Receive Date: 20190530
  Receipt Date: 20190621
  Transmission Date: 20190711
  Serious: Yes (Hospitalization)
  Sender: FDA-Public Use
  Company Number: FR-ROCHE-2322528

PATIENT
  Age: 59 Year
  Sex: Female
  Weight: 58 kg

DRUGS (3)
  1. RIVOTRIL [Concomitant]
     Active Substance: CLONAZEPAM
     Indication: PAIN
     Dosage: 3/5 G.
     Route: 048
     Dates: start: 20130322
  2. VEMURAFENIB. [Suspect]
     Active Substance: VEMURAFENIB
     Indication: ADENOCARCINOMA OF THE CERVIX
     Dosage: ON 24/APR/2019, SHE RECEIVED THE RECENT DOSE OF VEMURAFENIB.
     Route: 048
     Dates: start: 20180921
  3. SKENAN [Concomitant]
     Active Substance: MORPHINE SULFATE
     Indication: DIARRHOEA
     Route: 065

REACTIONS (1)
  - Epilepsy [Recovered/Resolved]

NARRATIVE: CASE EVENT DATE: 20190516
